FAERS Safety Report 8024962-9 (Version None)
Quarter: 2012Q1

REPORT INFORMATION
  Report Type: 
  Country: None (occurrence: None)
  Receive Date: 20120105
  Receipt Date: 20120103
  Transmission Date: 20120608
  Serious: Yes (Other)
  Sender: FDA-Public Use
  Company Number: PHHY2011BR111967

PATIENT
  Sex: Female

DRUGS (1)
  1. DOXYCYCLINE [Suspect]
     Indication: OVARIAN DISORDER
     Dosage: 100 MG, BID
     Route: 048
     Dates: start: 20111221

REACTIONS (4)
  - EYE HAEMORRHAGE [None]
  - EYE SWELLING [None]
  - VOMITING [None]
  - HEADACHE [None]
